FAERS Safety Report 5052070-8 (Version None)
Quarter: 2006Q3

REPORT INFORMATION
  Report Type: 
  Country: None (occurrence: None)
  Receive Date: 20060711
  Receipt Date: 20060628
  Transmission Date: 20061208
  Serious: Yes (Other)
  Sender: FDA-Public Use
  Company Number: A-CH2006-12523

PATIENT
  Age: 69 Year
  Sex: Female
  Weight: 44 kg

DRUGS (9)
  1. TRACLEER [Suspect]
     Indication: PULMONARY HYPERTENSION
     Dosage: 125 MG BID ORAL
     Route: 048
     Dates: start: 20051010, end: 20060612
  2. REMODULIN [Concomitant]
  3. RYTMONORM (PROPAFENONE HYDROCHLORIDE) [Concomitant]
  4. CITALOPRAM HYDROBROMIDE [Concomitant]
  5. BUMETANIDE [Concomitant]
  6. XANAX [Concomitant]
  7. OMEPRAZOLE [Concomitant]
  8. KALIUM DURETTES (POTASSIUM CHLORIDE) [Concomitant]
  9. MOTILIUM [Concomitant]

REACTIONS (1)
  - HEPATITIS TOXIC [None]
